FAERS Safety Report 8956322 (Version 2)
Quarter: 2013Q2

REPORT INFORMATION
  Report Type: Spontaneous
  Country: US (occurrence: US)
  Receive Date: 20121210
  Receipt Date: 20130419
  Transmission Date: 20140414
  Serious: No
  Sender: FDA-Public Use
  Company Number: US-009507513-1212USA002842

PATIENT
  Age: 20 Year
  Sex: Female
  Weight: 78.5 kg

DRUGS (1)
  1. NEXPLANON [Suspect]
     Indication: CONTRACEPTION
     Dosage: UNK
     Route: 059
     Dates: start: 20120928, end: 20121203

REACTIONS (3)
  - Skin disorder [Unknown]
  - Impaired healing [Not Recovered/Not Resolved]
  - Implant site scar [Unknown]
